FAERS Safety Report 5140827-4 (Version None)
Quarter: 2006Q4

REPORT INFORMATION
  Report Type: 
  Country: None (occurrence: None)
  Receive Date: 20061026
  Receipt Date: 20061013
  Transmission Date: 20070319
  Serious: Yes (Other)
  Sender: FDA-Public Use
  Company Number: 2006129566

PATIENT
  Age: 55 Year
  Sex: Female

DRUGS (1)
  1. SOLU-CORTEF [Suspect]
     Dosage: 100 MG, INTRAVENOUS
     Route: 042
     Dates: start: 20061012, end: 20061012

REACTIONS (1)
  - EYELID OEDEMA [None]
